FAERS Safety Report 8975313 (Version 1)
Quarter: 2012Q4

REPORT INFORMATION
  Report Type: 
  Country: US (occurrence: US)
  Receive Date: 20121219
  Receipt Date: 20121219
  Transmission Date: 20130627
  Serious: No
  Sender: FDA-Public Use
  Company Number: US-PFIZER INC-2012308374

PATIENT
  Age: 73 Year
  Sex: Male
  Weight: 74.83 kg

DRUGS (3)
  1. ZITHROMAX [Suspect]
     Indication: COUGH
     Dosage: UNK
     Dates: start: 20121206
  2. ZITHROMAX [Suspect]
     Indication: CONGESTION PULMONARY
  3. AZITHROMYCIN [Suspect]
     Dosage: UNK

REACTIONS (3)
  - Circumstance or information capable of leading to medication error [Unknown]
  - Somnolence [Unknown]
  - Poor quality drug administered [Unknown]
